FAERS Safety Report 15455693 (Version 1)
Quarter: 2018Q3

REPORT INFORMATION
  Report Type: Spontaneous
  Country: US (occurrence: US)
  Receive Date: 20180927
  Receipt Date: 20180927
  Transmission Date: 20181010
  Serious: No
  Sender: FDA-Public Use
  Company Number: None

PATIENT
  Age: 52 Year
  Sex: Female

DRUGS (7)
  1. ACTEMRA [Suspect]
     Active Substance: TOCILIZUMAB
     Dosage: ?          QUANTITY:0.9 ML MILLILITRE(S);?
     Route: 058
  2. ACYCLOVIR. [Concomitant]
     Active Substance: ACYCLOVIR
  3. LEVOTHYROXINE. [Concomitant]
     Active Substance: LEVOTHYROXINE
  4. METHOTREXATE. [Concomitant]
     Active Substance: METHOTREXATE
  5. ONDANSETRON [Concomitant]
     Active Substance: ONDANSETRON
  6. FLEXERIL [Concomitant]
     Active Substance: CYCLOBENZAPRINE HYDROCHLORIDE
  7. LEUCOVORIN. [Concomitant]
     Active Substance: LEUCOVORIN

REACTIONS (2)
  - Injection site pruritus [None]
  - Injection site reaction [None]
